FAERS Safety Report 21404020 (Version 1)
Quarter: 2022Q4

REPORT INFORMATION
  Report Type: Spontaneous
  Country: US (occurrence: US)
  Receive Date: 20221003
  Receipt Date: 20221003
  Transmission Date: 20230113
  Serious: No
  Sender: FDA-Public Use
  Company Number: US-BRISTOL-MYERS SQUIBB COMPANY-2022-114636

PATIENT
  Age: 64 Year
  Sex: Female
  Weight: 45.36 kg

DRUGS (5)
  1. ELIQUIS [Suspect]
     Active Substance: APIXABAN
     Indication: Thrombosis prophylaxis
     Dosage: DOSE : UNAVAILABLE;     FREQ : TWICE A DAY
     Route: 048
  2. OXYCODONE [Concomitant]
     Active Substance: OXYCODONE
     Indication: Pain
     Route: 065
  3. D3 VITAMIN [Concomitant]
     Indication: Product used for unknown indication
     Route: 065
  4. LIVER CARE [BUPLEURUM FALCATUM ROOT;CHOLINE BITARTRATE;CURCUMIN;INOSIT [Concomitant]
     Indication: Product used for unknown indication
     Route: 065
  5. MEGA B 100 B COMPLEX VITAMIN [Concomitant]
     Indication: Product used for unknown indication
     Route: 065

REACTIONS (6)
  - Joint swelling [Unknown]
  - Muscle spasms [Unknown]
  - Burning sensation [Unknown]
  - Pain [Unknown]
  - Blood urine present [Unknown]
  - Urine abnormality [Unknown]

NARRATIVE: CASE EVENT DATE: 20220901
